FAERS Safety Report 19482397 (Version 3)
Quarter: 2021Q4

REPORT INFORMATION
  Report Type: Spontaneous
  Country: US (occurrence: US)
  Receive Date: 20210701
  Receipt Date: 20211002
  Transmission Date: 20220303
  Serious: No
  Sender: FDA-Public Use
  Company Number: US-SA-SAC20210629000939

PATIENT
  Age: 68 Year
  Sex: Female

DRUGS (1)
  1. DUPIXENT [Suspect]
     Active Substance: DUPILUMAB
     Indication: Asthma
     Dosage: 300 MG, QOW
     Route: 058
     Dates: start: 20190402

REACTIONS (3)
  - Tooth abscess [Not Recovered/Not Resolved]
  - Impaired quality of life [Unknown]
  - Product use issue [Unknown]

NARRATIVE: CASE EVENT DATE: 20190402
